FAERS Safety Report 5402039-6 (Version None)
Quarter: 2007Q3

REPORT INFORMATION
  Report Type: 
  Country: None (occurrence: None)
  Receive Date: 20070727
  Receipt Date: 20070711
  Transmission Date: 20080115
  Serious: Yes (Hospitalization)
  Sender: FDA-Public Use
  Company Number: DSA_30241_2007

PATIENT
  Age: 70 Year
  Sex: Male

DRUGS (8)
  1. RENIVACE (RENIVACE - ENALAPRIL MALEATE) [Suspect]
     Indication: CARDIAC FAILURE
     Dosage: 2.5 MG QD ORAL
     Route: 048
     Dates: end: 20070620
  2. EPALRESTAT (KINEDAK-EPALRESTAT) [Suspect]
     Indication: DRUG USE FOR UNKNOWN INDICATION
     Dosage: DF ORAL
     Route: 048
     Dates: end: 20070620
  3. ADACTONE-A (UNKNOWN) [Concomitant]
  4. ARTIST (UNKNOWN) [Concomitant]
  5. DIGOSIN (UNKNOWN) [Concomitant]
  6. LASIX /00032601/ (UNKNOWN) [Concomitant]
  7. SLOW-K (UNKNOWN) [Concomitant]
  8. WARFARIN POTASSIUM (UNKNOWN) [Concomitant]

REACTIONS (3)
  - ALANINE AMINOTRANSFERASE INCREASED [None]
  - ASPARTATE AMINOTRANSFERASE INCREASED [None]
  - LEUKOPENIA [None]
